FAERS Safety Report 21173895 (Version 1)
Quarter: 2022Q3

REPORT INFORMATION
  Report Type: Spontaneous
  Country: LB (occurrence: LB)
  Receive Date: 20220804
  Receipt Date: 20220804
  Transmission Date: 20221027
  Serious: Yes (Other)
  Sender: FDA-Public Use
  Company Number: LB-PFIZER INC-PV202200033351

PATIENT
  Age: 58 Year
  Sex: Female

DRUGS (2)
  1. PEMETREXED [Suspect]
     Active Substance: PEMETREXED
     Indication: Chemotherapy
     Dosage: UNK
     Dates: start: 20220130, end: 20220428
  2. CARBOPLATIN [Suspect]
     Active Substance: CARBOPLATIN
     Indication: Chemotherapy
     Dosage: UNK
     Dates: start: 20220130, end: 20220428

REACTIONS (3)
  - Deep vein thrombosis [Unknown]
  - Lymphadenopathy [Unknown]
  - Neoplasm recurrence [Unknown]
